FAERS Safety Report 18518490 (Version 1)
Quarter: 2020Q4

REPORT INFORMATION
  Report Type: Spontaneous
  Country: AU (occurrence: AU)
  Receive Date: 20201118
  Receipt Date: 20201118
  Transmission Date: 20210114
  Serious: Yes (Hospitalization, Disabling, Other)
  Sender: FDA-Public Use
  Company Number: AU-MYLANLABS-2020M1082413

PATIENT
  Age: 57 Year
  Sex: Female

DRUGS (10)
  1. MELOXICAM. [Concomitant]
     Active Substance: MELOXICAM
     Dosage: 1 TABLET IN THE MORNING
  2. CEFTRIAXONE. [Concomitant]
     Active Substance: CEFTRIAXONE
     Dosage: UNK
  3. PANTOPRAZOLE [Concomitant]
     Active Substance: PANTOPRAZOLE
     Indication: GASTROOESOPHAGEAL REFLUX DISEASE
     Dosage: 1 TABLET IN THE MORNING
  4. DOXYCYCLINE. [Concomitant]
     Active Substance: DOXYCYCLINE
     Dosage: UNK
  5. RIVAROXABAN [Concomitant]
     Active Substance: RIVAROXABAN
     Indication: ATRIAL FIBRILLATION
     Dosage: 20 MILLIGRAM
  6. BISOPROLOL [Concomitant]
     Active Substance: BISOPROLOL
     Dosage: 5 MILLIGRAM
  7. CLOZARIL [Suspect]
     Active Substance: CLOZAPINE
     Indication: SCHIZOPHRENIA
     Dosage: 200 MILLIGRAM
     Route: 048
     Dates: start: 20200828
  8. CLOZARIL [Suspect]
     Active Substance: CLOZAPINE
     Indication: INTELLECTUAL DISABILITY
  9. RISPERIDONE. [Concomitant]
     Active Substance: RISPERIDONE
     Indication: SCHIZOPHRENIA
     Dosage: 75 MILLIGRAM, Q2W
     Route: 030
     Dates: end: 20201001
  10. QUETIAPINE. [Concomitant]
     Active Substance: QUETIAPINE
     Indication: SCHIZOPHRENIA
     Dosage: 1 TABLET IN THE NIGHT

REACTIONS (9)
  - Myocarditis [Recovered/Resolved]
  - C-reactive protein increased [Unknown]
  - Dyspnoea exertional [Unknown]
  - Troponin I increased [Unknown]
  - Eosinophil count increased [Unknown]
  - Brain natriuretic peptide increased [Unknown]
  - Fluid overload [Unknown]
  - Cardiac failure [Unknown]
  - Haemoglobin decreased [Unknown]

NARRATIVE: CASE EVENT DATE: 20200919
